FAERS Safety Report 14685665 (Version 6)
Quarter: 2018Q2

REPORT INFORMATION
  Report Type: Spontaneous
  Country: DE (occurrence: DE)
  Receive Date: 20180327
  Receipt Date: 20180523
  Transmission Date: 20180711
  Serious: Yes (Hospitalization, Other)
  Sender: FDA-Public Use
  Company Number: DE-PFIZER INC-2018119071

PATIENT
  Sex: Male

DRUGS (13)
  1. PEGFILGRASTIM [Suspect]
     Active Substance: PEGFILGRASTIM
     Indication: B-CELL LYMPHOMA
     Dosage: 6 MG, UNK, (D4)
     Route: 058
     Dates: start: 20170907, end: 20171204
  2. DOXORUBICIN [Suspect]
     Active Substance: DOXORUBICIN
     Indication: B-CELL LYMPHOMA
     Dosage: 50 MG/M2, UNK (D2, IV)
     Route: 042
     Dates: start: 20170905, end: 20171201
  3. VALSARTAN HCT [Concomitant]
     Active Substance: HYDROCHLOROTHIAZIDE\VALSARTAN
     Indication: HYPERTENSION
     Dosage: 160/12.5MG, QD (1-0-0) (1 DF IN THE MORNING)
     Route: 048
  4. PREDNISOLONE. [Suspect]
     Active Substance: PREDNISOLONE
     Indication: B-CELL LYMPHOMA
     Dosage: 100 MG, UNK (D1-5)
     Route: 048
     Dates: start: 20170814, end: 20171201
  5. ACETYLSALICYLIC ACID [Concomitant]
     Active Substance: ASPIRIN
     Indication: ANTICOAGULANT THERAPY
     Dosage: 100 MG, DAILY
     Route: 048
     Dates: start: 20170923
  6. VALSARTAN. [Concomitant]
     Active Substance: VALSARTAN
     Indication: HYPERTENSION
     Dosage: 80 MG, 1X/DAY
     Route: 048
  7. SIMVASTATIN. [Concomitant]
     Active Substance: SIMVASTATIN
     Indication: HYPERCHOLESTEROLAEMIA
     Dosage: 40 MG, 0-0-1/2 (HALF A DF IN THE EVENING)
     Route: 048
     Dates: start: 20171002
  8. METOPROLOLTARTRAT [Concomitant]
     Indication: HYPERTENSION
     Dosage: 47.5 MG, 1X/DAY
     Route: 048
  9. LEUCOVORIN. [Suspect]
     Active Substance: LEUCOVORIN
     Indication: B-CELL LYMPHOMA
     Dosage: 30 MG, UNK (DEPENDING ON MTX LEVEL IN BLOOD, D1-D4)
     Route: 042
     Dates: start: 20170816, end: 20180106
  10. RITUXIMAB. [Suspect]
     Active Substance: RITUXIMAB
     Indication: B-CELL LYMPHOMA
     Dosage: 375 MG/M2, UNK (D1, IV),
     Route: 042
     Dates: start: 20170814, end: 20180215
  11. CYCLOPHOSPHAMIDE. [Suspect]
     Active Substance: CYCLOPHOSPHAMIDE
     Indication: B-CELL LYMPHOMA
     Dosage: 750 MG/M2, UNK, (D2, IV)
     Route: 042
     Dates: start: 20170905, end: 20171201
  12. METHOTREXATE DISODIUM [Suspect]
     Active Substance: METHOTREXATE SODIUM
     Indication: B-CELL LYMPHOMA
     Dosage: 0.15 G/M2 (1X BEFORE START CTX, 1X AFTER CTX)
     Route: 042
     Dates: start: 20170815, end: 20180102
  13. VINCRISTINE [Suspect]
     Active Substance: VINCRISTINE
     Indication: B-CELL LYMPHOMA
     Dosage: 3.7 MG, UNK (D2, IV)
     Route: 042
     Dates: start: 20170905, end: 20171201

REACTIONS (1)
  - Circulatory collapse [Recovered/Resolved]

NARRATIVE: CASE EVENT DATE: 20180223
